FAERS Safety Report 11362990 (Version 9)
Quarter: 2017Q1

REPORT INFORMATION
  Report Type: Report from Study
  Country: US (occurrence: US)
  Receive Date: 20150810
  Receipt Date: 20170227
  Transmission Date: 20170428
  Serious: Yes (Death, Hospitalization, Other)
  Sender: FDA-Public Use
  Company Number: US-ACTELION-A-US2015-121067

PATIENT
  Age: 52 Year
  Sex: Female

DRUGS (6)
  1. VELETRI [Suspect]
     Active Substance: EPOPROSTENOL
     Dosage: UNK
     Route: 042
  2. WARFARIN [Concomitant]
     Active Substance: WARFARIN
  3. TRACLEER [Suspect]
     Active Substance: BOSENTAN
     Indication: PULMONARY ARTERIAL HYPERTENSION
     Dosage: 125 MG, BID
     Route: 048
     Dates: start: 20121210, end: 20170117
  4. VELETRI [Suspect]
     Active Substance: EPOPROSTENOL
     Dosage: 32.7 NG/KG, PER MIN
     Route: 042
  5. OXYGEN. [Concomitant]
     Active Substance: OXYGEN
     Dosage: 5 L @ REST, 8 L @ ACTIVITY
  6. VELETRI [Suspect]
     Active Substance: EPOPROSTENOL
     Indication: PULMONARY ARTERIAL HYPERTENSION
     Dosage: 14.1 NG/KG, PER MIN
     Route: 042
     Dates: start: 20150604, end: 20170117

REACTIONS (26)
  - Oxygen saturation decreased [Unknown]
  - Pulmonary oedema [Unknown]
  - Ascites [Unknown]
  - Peripheral swelling [Unknown]
  - Dehydration [Unknown]
  - Hypoxia [Unknown]
  - Fluid retention [Unknown]
  - Malaise [Unknown]
  - Dyspnoea [Unknown]
  - Death [Fatal]
  - Hypotension [Unknown]
  - Oedema [Unknown]
  - Condition aggravated [Unknown]
  - Feeling abnormal [Unknown]
  - Dyspnoea exertional [Unknown]
  - Fluid overload [Unknown]
  - Ammonia increased [Unknown]
  - Depressed level of consciousness [Unknown]
  - Blood albumin decreased [Unknown]
  - Pneumonia aspiration [Unknown]
  - Paracentesis [Unknown]
  - Gait disturbance [Unknown]
  - Blood magnesium decreased [Unknown]
  - Scleroderma [Unknown]
  - Metabolic disorder [Unknown]
  - Disease progression [Unknown]

NARRATIVE: CASE EVENT DATE: 20170117
